FAERS Safety Report 7563258-6 (Version None)
Quarter: 2011Q2

REPORT INFORMATION
  Report Type: 
  Country: None (occurrence: None)
  Receive Date: 20110622
  Receipt Date: 20110616
  Transmission Date: 20111010
  Serious: Yes (Death)
  Sender: FDA-Public Use
  Company Number: TN-SANOFI-AVENTIS-2011SA038687

PATIENT
  Age: 64 Year
  Sex: Male

DRUGS (6)
  1. AMLODIPINE BESYLATE [Concomitant]
     Route: 048
     Dates: end: 20110416
  2. PLAVIX [Suspect]
     Indication: ACUTE CORONARY SYNDROME
     Route: 048
     Dates: start: 20101129, end: 20110416
  3. LANTUS [Concomitant]
     Route: 058
     Dates: end: 20110416
  4. ASPEGIC 325 [Concomitant]
     Route: 048
     Dates: end: 20110416
  5. PLAVIX [Suspect]
     Route: 048
     Dates: start: 20101129, end: 20110416
  6. CORVASAL [Concomitant]
     Route: 048
     Dates: end: 20110416

REACTIONS (1)
  - LUNG NEOPLASM MALIGNANT [None]
